FAERS Safety Report 6802759-2 (Version None)
Quarter: 2010Q2

REPORT INFORMATION
  Report Type: 
  Country: None (occurrence: None)
  Receive Date: 20100628
  Receipt Date: 20100615
  Transmission Date: 20101027
  Serious: Yes (Hospitalization, Other)
  Sender: FDA-Public Use
  Company Number: US-JNJFOC-20100104192

PATIENT
  Sex: Male
  Weight: 99.34 kg

DRUGS (4)
  1. REMICADE [Suspect]
     Indication: ANKYLOSING SPONDYLITIS
     Route: 042
  2. REMICADE [Suspect]
     Indication: PSORIATIC ARTHROPATHY
     Route: 042
  3. METHOTREXATE [Suspect]
     Indication: DRUG USE FOR UNKNOWN INDICATION
  4. LABETALOL HCL [Concomitant]

REACTIONS (26)
  - AFFECTIVE DISORDER [None]
  - AMNESTIC DISORDER [None]
  - APHASIA [None]
  - BALANCE DISORDER [None]
  - CEREBRAL HYPOPERFUSION [None]
  - CEREBROVASCULAR DISORDER [None]
  - CHEST PAIN [None]
  - DEPRESSION [None]
  - DYSLIPIDAEMIA [None]
  - HAEMATOCHEZIA [None]
  - HEADACHE [None]
  - HYPERTENSION [None]
  - HYPERTROPHIC CARDIOMYOPATHY [None]
  - HYPOAESTHESIA [None]
  - INCORRECT DOSE ADMINISTERED [None]
  - INSOMNIA [None]
  - LEUKOCYTOSIS [None]
  - NEPHROLITHIASIS [None]
  - PARAESTHESIA [None]
  - PERSONALITY CHANGE [None]
  - PREGNANCY OF PARTNER [None]
  - PRESYNCOPE [None]
  - RED BLOOD CELL COUNT INCREASED [None]
  - RENAL FAILURE [None]
  - THROMBOCYTOPENIA [None]
  - VISUAL IMPAIRMENT [None]
